FAERS Safety Report 16056371 (Version 1)
Quarter: 2019Q1

REPORT INFORMATION
  Report Type: Spontaneous
  Country: US (occurrence: US)
  Receive Date: 20190311
  Receipt Date: 20190311
  Transmission Date: 20190418
  Serious: No
  Sender: FDA-Public Use
  Company Number: PHEH2019US009348

PATIENT
  Sex: Female
  Weight: 139.71 kg

DRUGS (2)
  1. OMNITROPE [Suspect]
     Active Substance: SOMATROPIN
     Indication: PRODUCT USED FOR UNKNOWN INDICATION
     Route: 065
  2. GENOTROPIN [Suspect]
     Active Substance: SOMATROPIN
     Indication: PRODUCT USED FOR UNKNOWN INDICATION
     Dosage: 12 MG, UNK
     Route: 065

REACTIONS (5)
  - Asthenia [Unknown]
  - Drug ineffective [Unknown]
  - Hepatomegaly [Unknown]
  - Hypoacusis [Unknown]
  - Gastrointestinal disorder [Unknown]
